FAERS Safety Report 5403384-0 (Version None)
Quarter: 2007Q3

REPORT INFORMATION
  Report Type: 
  Country: None (occurrence: None)
  Receive Date: 20070730
  Receipt Date: 20070722
  Transmission Date: 20080115
  Serious: Yes (Life-Threatening)
  Sender: FDA-Public Use
  Company Number: 17021

PATIENT
  Age: 69 Year
  Sex: Male

DRUGS (4)
  1. VINCRISTINE [Suspect]
     Indication: HODGKIN'S DISEASE
  2. CYCLOPHOSPHAMIDE [Suspect]
     Indication: HODGKIN'S DISEASE
  3. DOXORUBICIN [Suspect]
     Indication: HODGKIN'S DISEASE
  4. PREDNISONE TAB [Suspect]
     Indication: HODGKIN'S DISEASE

REACTIONS (4)
  - HAEMODYNAMIC INSTABILITY [None]
  - HAEMOGLOBIN DECREASED [None]
  - LOWER GASTROINTESTINAL HAEMORRHAGE [None]
  - PLATELET COUNT DECREASED [None]
